FAERS Safety Report 6306009-5 (Version None)
Quarter: 2009Q3

REPORT INFORMATION
  Report Type: 
  Country: None (occurrence: None)
  Receive Date: 20090812
  Receipt Date: 20090731
  Transmission Date: 20100115
  Serious: Yes (Other)
  Sender: FDA-Public Use
  Company Number: JP-PFIZER INC-2009251185

PATIENT
  Age: 50 Year

DRUGS (3)
  1. ZITHROMAC SR [Suspect]
     Indication: BRONCHITIS
     Route: 048
     Dates: start: 20090701, end: 20090701
  2. DALACIN [Suspect]
     Indication: BRONCHITIS
     Dosage: UNK
     Route: 042
     Dates: start: 20090701
  3. MIYARI BACTERIA [Concomitant]
     Dosage: UNK
     Dates: start: 20090701

REACTIONS (3)
  - DIARRHOEA [None]
  - LIVER FUNCTION TEST ABNORMAL [None]
  - PERIPHERAL COLDNESS [None]
